FAERS Safety Report 7155491-2 (Version None)
Quarter: 2010Q4

REPORT INFORMATION
  Report Type: 
  Country: None (occurrence: None)
  Receive Date: 20101214
  Receipt Date: 20080715
  Transmission Date: 20110411
  Serious: No
  Sender: FDA-Public Use
  Company Number: 2008BI018972

PATIENT
  Age: 51 Year
  Sex: Female

DRUGS (1)
  1. TYSABRI [Suspect]
     Indication: MULTIPLE SCLEROSIS
     Route: 042
     Dates: start: 20070713

REACTIONS (7)
  - BRONCHITIS [None]
  - EXTRAOCULAR MUSCLE PARESIS [None]
  - FATIGUE [None]
  - HEADACHE [None]
  - NAUSEA [None]
  - STRABISMUS [None]
  - VOMITING [None]
